FAERS Safety Report 10952804 (Version 2)
Quarter: 2015Q2

REPORT INFORMATION
  Report Type: Spontaneous
  Country: JP (occurrence: JP)
  Receive Date: 20150325
  Receipt Date: 20150424
  Transmission Date: 20150821
  Serious: Yes (Other)
  Sender: FDA-Public Use
  Company Number: JP-ASTRAZENECA-2015SE27671

PATIENT
  Age: 62 Year
  Sex: Male

DRUGS (9)
  1. SENNA [Concomitant]
     Active Substance: SENNA LEAF\SENNOSIDES\SENNOSIDES A AND B
     Route: 048
  2. MICARDIS [Suspect]
     Active Substance: TELMISARTAN
     Indication: HYPERTENSION
     Route: 048
  3. LIMAS [Concomitant]
     Active Substance: LITHIUM CARBONATE
  4. LUVOX [Concomitant]
     Active Substance: FLUVOXAMINE MALEATE
     Route: 048
  5. SELTEPNON [Concomitant]
     Active Substance: TEPRENONE
     Route: 048
  6. SEROQUEL [Suspect]
     Active Substance: QUETIAPINE FUMARATE
     Indication: DEPRESSION
     Route: 048
  7. AMOBAN [Concomitant]
     Active Substance: ZOPICLONE
     Route: 048
  8. LENDORMIN [Concomitant]
     Active Substance: BROTIZOLAM
     Route: 048
  9. SOLANAX [Concomitant]
     Active Substance: ALPRAZOLAM
     Route: 048

REACTIONS (2)
  - Bone loss [Not Recovered/Not Resolved]
  - Dental alveolar anomaly [Not Recovered/Not Resolved]

NARRATIVE: CASE EVENT DATE: 201503
